FAERS Safety Report 7080322-9 (Version None)
Quarter: 2010Q4

REPORT INFORMATION
  Report Type: 
  Country: None (occurrence: None)
  Receive Date: 20101022
  Receipt Date: 20101007
  Transmission Date: 20110411
  Serious: Yes (Death)
  Sender: FDA-Public Use
  Company Number: 011369

PATIENT

DRUGS (10)
  1. BUSULFEX [Suspect]
     Indication: STEM CELL TRANSPLANT
     Dosage: INTRAVENOUS
     Route: 042
  2. CYCLOPHOSPHAMIDE [Concomitant]
  3. THIOTEPA [Concomitant]
  4. ATG (ANTILYMPHOCYTE IMMUNOGLOBULIN (HORSE)) [Concomitant]
  5. HYDROXYUREA [Concomitant]
  6. AZATHIOPRINE [Concomitant]
  7. FLUDARABINE PHOSPHATE [Concomitant]
  8. CYCLOSPORINE [Concomitant]
  9. METHYLPREDNISOLONE [Concomitant]
  10. METHOTREXATE [Concomitant]

REACTIONS (10)
  - ADENOVIRUS INFECTION [None]
  - BK VIRUS INFECTION [None]
  - CYSTITIS HAEMORRHAGIC [None]
  - CYTOMEGALOVIRUS INFECTION [None]
  - GRAFT VERSUS HOST DISEASE [None]
  - HYDRONEPHROSIS [None]
  - INFECTION [None]
  - PROTEINURIA [None]
  - TRANSPLANT FAILURE [None]
  - URETERIC STENOSIS [None]
